FAERS Safety Report 25307673 (Version 2)
Quarter: 2025Q2

REPORT INFORMATION
  Report Type: Spontaneous
  Country: US (occurrence: US)
  Receive Date: 20250513
  Receipt Date: 20250530
  Transmission Date: 20250716
  Serious: No
  Sender: INCYTE
  Company Number: US-EVENT-002500

PATIENT
  Age: 18 Year

DRUGS (2)
  1. OPZELURA [Suspect]
     Active Substance: RUXOLITINIB PHOSPHATE
     Indication: Dermatitis atopic
     Dosage: 1.5 PERCENT, APPLY A THIN LAYER TO AFFECTED AREA(S) ON TRUNK, ARMS, AND LEGS TWICE DAILY AS NEEDED
  2. OPZELURA [Suspect]
     Active Substance: RUXOLITINIB PHOSPHATE
     Dosage: 1.5 PERCENT, APPLY A THIN LAYER TO AFFECTED AREA(S) ON TRUNK, ARMS, AND LEGS TWICE DAILY AS NEEDED
     Route: 065

REACTIONS (2)
  - Migraine [Unknown]
  - Product availability issue [Unknown]
